FAERS Safety Report 22678506 (Version 7)
Quarter: 2023Q4

REPORT INFORMATION
  Report Type: Spontaneous
  Country: US (occurrence: US)
  Receive Date: 20230706
  Receipt Date: 20231205
  Transmission Date: 20240110
  Serious: No
  Sender: FDA-Public Use
  Company Number: US-PFIZER INC-PV202300116739

PATIENT
  Age: 68 Year
  Sex: Female
  Weight: 63.492 kg

DRUGS (2)
  1. IBRANCE [Suspect]
     Active Substance: PALBOCICLIB
     Indication: Neoplasm malignant
     Dosage: 125 MG, 1X/DAY
     Dates: start: 202307
  2. IBRANCE [Suspect]
     Active Substance: PALBOCICLIB
     Dosage: 125 MG, 1X/DAY
     Dates: start: 2023

REACTIONS (10)
  - Cerebral disorder [Unknown]
  - Vomiting [Unknown]
  - Dyspepsia [Recovered/Resolved]
  - Therapeutic response unexpected [Unknown]
  - Insomnia [Unknown]
  - Anxiety [Unknown]
  - Neoplasm progression [Unknown]
  - Myalgia [Unknown]
  - Neck pain [Unknown]
  - Pain in extremity [Unknown]

NARRATIVE: CASE EVENT DATE: 20230701
